FAERS Safety Report 22339455 (Version 1)
Quarter: 2023Q2

REPORT INFORMATION
  Report Type: Report from Study
  Country: US (occurrence: US)
  Receive Date: 20230518
  Receipt Date: 20230518
  Transmission Date: 20230722
  Serious: Yes (Other)
  Sender: FDA-Public Use
  Company Number: US-JAZZ PHARMACEUTICALS-2023-US-005655

PATIENT
  Age: 59 Year
  Sex: Female

DRUGS (2)
  1. XYWAV [Suspect]
     Active Substance: CALCIUM OXYBATE\MAGNESIUM OXYBATE\POTASSIUM OXYBATE\SODIUM OXYBATE
     Indication: Hypersomnia
     Dosage: UNK
  2. MUSHROOM COMPLEX [GANODERMA LUCIDUM;GRIFOLA FRONDOSA;LENTINUS EDODES] [Concomitant]
     Indication: Product used for unknown indication
     Dosage: UNK
     Dates: start: 20230301

REACTIONS (4)
  - Breast cancer [Unknown]
  - Rash [Unknown]
  - Oral disorder [Unknown]
  - Pre-existing condition improved [Unknown]

NARRATIVE: CASE EVENT DATE: 20230203
